FAERS Safety Report 15535939 (Version 1)
Quarter: 2018Q4

REPORT INFORMATION
  Report Type: Spontaneous
  Country: DE (occurrence: DE)
  Receive Date: 20181022
  Receipt Date: 20181022
  Transmission Date: 20190205
  Serious: Yes (Hospitalization)
  Sender: FDA-Public Use
  Company Number: DE-ACCORD-073567

PATIENT
  Age: 79 Year
  Sex: Female
  Weight: 55 kg

DRUGS (9)
  1. METOPROLOL. [Concomitant]
     Active Substance: METOPROLOL
     Dosage: 50 MG, 1-0-1-0, TABLETTEN
     Route: 048
  2. FUROSEMIDE. [Concomitant]
     Active Substance: FUROSEMIDE
     Dosage: 20 MG, 1-0-0-0, TABLETTEN
     Route: 048
  3. FOLINIC ACID [Suspect]
     Active Substance: LEUCOVORIN
     Indication: PRODUCT USED FOR UNKNOWN INDICATION
     Dosage: 200 MG/METER SQUARE, INJEKTIONS-/INFUSIONSLOSUNG
     Route: 042
  4. BEVACIZUMAB. [Suspect]
     Active Substance: BEVACIZUMAB
     Indication: PRODUCT USED FOR UNKNOWN INDICATION
     Dosage: 5 MG/METER SQAURE, INJEKTIONS-/INFUSIONSLOSUNG
     Route: 042
  5. OXALIPLATIN. [Suspect]
     Active Substance: OXALIPLATIN
     Indication: PRODUCT USED FOR UNKNOWN INDICATION
     Dosage: 50 MG/METER SQUARE, INJEKTIONS-/INFUSIONSLOSUNG
     Route: 042
  6. PANTOPRAZOLE [Concomitant]
     Active Substance: PANTOPRAZOLE
     Dosage: 40 MG, 1-0-0-0, TABLETTEN
     Route: 048
  7. METAMIZOLE SODIUM [Concomitant]
     Active Substance: METAMIZOLE SODIUM
     Dosage: 500 MG, BEDARF, TABLETTEN
     Route: 048
  8. FLUOROURACIL. [Suspect]
     Active Substance: FLUOROURACIL
     Indication: PRODUCT USED FOR UNKNOWN INDICATION
     Dosage: 2400 MG/METER SQUARE, INJEKTIONS-/INFUSIONSOSUNG
     Route: 042
  9. RIVAROXABAN [Concomitant]
     Active Substance: RIVAROXABAN
     Dosage: 20 MG, 1-0-0-0, TABLETTEN
     Route: 048

REACTIONS (3)
  - Pain [Unknown]
  - Rash [Unknown]
  - General physical health deterioration [Unknown]
